FAERS Safety Report 8855301 (Version 1)
Quarter: 2012Q4

REPORT INFORMATION
  Report Type: 
  Country: US (occurrence: US)
  Receive Date: 20121023
  Receipt Date: 20121023
  Transmission Date: 20130627
  Serious: No
  Sender: FDA-Public Use
  Company Number: US-AMGEN-USASP2012060217

PATIENT
  Age: 50 Year
  Sex: Female
  Weight: 72.56 kg

DRUGS (10)
  1. ENBREL [Suspect]
     Indication: PRODUCT USED FOR UNKNOWN INDICATION
     Dosage: 50 mg/ml, qwk
     Route: 058
  2. PLAQUENIL                          /00072602/ [Concomitant]
     Dosage: UNK
  3. PREDNISONE [Concomitant]
     Dosage: UNK
  4. SYNTHROID [Concomitant]
     Dosage: 25 mug, UNK
  5. CELEXA                             /00582602/ [Concomitant]
     Dosage: 10 mg, UNK
  6. TRAMADOL [Concomitant]
     Dosage: 50 mg, UNK
  7. FLEXERIL                           /00428402/ [Concomitant]
     Dosage: 5 mg, UNK
  8. VALTREX [Concomitant]
     Dosage: 500 mg, UNK
  9. TYLENOL /00020001/ [Concomitant]
     Dosage: 500 mg, UNK
  10. ESTRADIOL [Concomitant]
     Dosage: 0.5 mg, UNK

REACTIONS (1)
  - Fatigue [Unknown]
